FAERS Safety Report 18443254 (Version 1)
Quarter: 2020Q4

REPORT INFORMATION
  Report Type: Spontaneous
  Country: US (occurrence: US)
  Receive Date: 20201029
  Receipt Date: 20201029
  Transmission Date: 20210114
  Serious: No
  Sender: FDA-Public Use
  Company Number: US-ALLERGAN-2013496US

PATIENT
  Age: 75 Year
  Sex: Male

DRUGS (3)
  1. INFED [Suspect]
     Active Substance: IRON DEXTRAN
     Indication: BLOOD IRON DECREASED
     Dosage: A LITTLE LESS THAN 900 MG
     Route: 042
     Dates: start: 202003, end: 202003
  2. UNSPECIFIED SEIZURE MEDICATIONS [Concomitant]
     Active Substance: UNSPECIFIED INGREDIENT
     Indication: SEIZURE
  3. ZONEGRAN [Concomitant]
     Active Substance: ZONISAMIDE
     Indication: SEIZURE
     Dosage: 25 MG 8 TIMES PER DAY
     Route: 048

REACTIONS (3)
  - Dehydration [Recovered/Resolved]
  - Gastrointestinal anastomotic leak [Unknown]
  - Blood glucose abnormal [Recovering/Resolving]

NARRATIVE: CASE EVENT DATE: 202003
